FAERS Safety Report 21748039 (Version 1)
Quarter: 2022Q4

REPORT INFORMATION
  Report Type: Spontaneous
  Country: US (occurrence: None)
  Receive Date: 20221217
  Receipt Date: 20221217
  Transmission Date: 20230112
  Serious: Yes (Disabling)
  Sender: FDA-Public Use
  Company Number: None

PATIENT
  Age: 30 Year
  Sex: Male
  Weight: 81 kg

DRUGS (9)
  1. TRINTELLIX [Suspect]
     Active Substance: VORTIOXETINE HYDROBROMIDE
     Indication: Depression
     Dosage: OTHER QUANTITY : 1 TABLET(S);?FREQUENCY : DAILY;?
     Route: 048
  2. TRINTELLIX [Suspect]
     Active Substance: VORTIOXETINE HYDROBROMIDE
     Indication: Anxiety
  3. Trintellix 10mg 1x/day [Concomitant]
  4. truvada 200-300mg 1x/day [Concomitant]
  5. propranolol 10mg 1x/day [Concomitant]
  6. hydroxyzine 25-50mg PRN [Concomitant]
  7. bupropion 300mg 1x/day [Concomitant]
  8. KRILL OIL [Concomitant]
     Active Substance: DIETARY SUPPLEMENT\KRILL OIL
  9. centrum for men multivitamin [Concomitant]

REACTIONS (2)
  - Nausea [None]
  - Vomiting [None]
